FAERS Safety Report 8451952-4 (Version None)
Quarter: 2012Q2

REPORT INFORMATION
  Report Type: 
  Country: None (occurrence: None)
  Receive Date: 20120620
  Receipt Date: 20120421
  Transmission Date: 20120825
  Serious: No
  Sender: FDA-Public Use
  Company Number: US-VERTEX PHARMACEUTICALS INC.-AE-2012-004337

PATIENT
  Sex: Male
  Weight: 88.53 kg

DRUGS (3)
  1. INCIVEK [Suspect]
     Indication: HEPATITIS C
     Route: 048
     Dates: start: 20120323
  2. RIBAVIRIN [Concomitant]
     Indication: HEPATITIS C
     Route: 048
     Dates: start: 20120323
  3. PEGASYS [Concomitant]
     Indication: HEPATITIS C
     Route: 058
     Dates: start: 20120323

REACTIONS (9)
  - EAR PAIN [None]
  - ORAL MUCOSAL BLISTERING [None]
  - HAEMATOCHEZIA [None]
  - HEADACHE [None]
  - ANORECTAL DISCOMFORT [None]
  - OROPHARYNGEAL PAIN [None]
  - DYSPHAGIA [None]
  - CONSTIPATION [None]
  - INJECTION SITE RASH [None]
